FAERS Safety Report 4811322-4 (Version None)
Quarter: 2005Q4

REPORT INFORMATION
  Report Type: 
  Country: None (occurrence: None)
  Receive Date: 20051027
  Receipt Date: 20051013
  Transmission Date: 20060501
  Serious: Yes (Life-Threatening, Hospitalization)
  Sender: FDA-Public Use
  Company Number: GBWYE054813OCT05

PATIENT
  Age: 59 Year
  Sex: Male
  Weight: 64 kg

DRUGS (5)
  1. ENBREL [Suspect]
     Indication: RHEUMATOID ARTHRITIS
     Dosage: 25MG FREQUENCY NOT STATED
     Route: 058
     Dates: start: 20041012, end: 20050530
  2. SULFASALAZINE [Concomitant]
     Indication: RHEUMATOID ARTHRITIS
     Route: 048
     Dates: start: 19930301
  3. NAPROXEN [Concomitant]
     Indication: RHEUMATOID ARTHRITIS
     Dosage: 500 MG IN THE MORNING, 1 G AT NIGHT
     Route: 048
     Dates: start: 19930301
  4. ACETAMINOPHEN [Concomitant]
     Indication: RHEUMATOID ARTHRITIS
     Dosage: 1G WHEN REQUIRED
     Route: 048
     Dates: start: 20031201
  5. ACETAMINOPHEN [Concomitant]
     Indication: PAIN

REACTIONS (3)
  - ALVEOLITIS [None]
  - EMPHYSEMA [None]
  - PNEUMONIA [None]
